FAERS Safety Report 8071362 (Version 5)
Quarter: 2012Q4

REPORT INFORMATION
  Report Type: 
  Country: IT (occurrence: IT)
  Receive Date: 20110805
  Receipt Date: 20121005
  Transmission Date: 20130627
  Serious: Yes (Hospitalization, Other)
  Sender: FDA-Public Use
  Company Number: IT-GENZYME-CERZ-1002174

PATIENT
  Age: 71 Year
  Sex: Female

DRUGS (12)
  1. CEREZYME [Suspect]
     Indication: GAUCHER^S DISEASE
     Dosage: 3600 U, q4w
     Route: 041
     Dates: start: 20110714
  2. CEREZYME [Suspect]
     Dosage: UNK
     Dates: start: 20111020
  3. CEREZYME [Suspect]
     Dosage: UNK
     Dates: start: 20111104
  4. METHYLPREDNISOLONE [Concomitant]
     Indication: PREMEDICATION
     Dosage: UNK
     Route: 065
  5. ANTIHISTAMINES [Concomitant]
     Indication: PREMEDICATION
     Dosage: UNK
     Route: 065
  6. CORTISONE [Concomitant]
     Indication: PREMEDICATION
     Dosage: UNK
     Route: 065
  7. CHLORPHENIRAMINE [Concomitant]
     Indication: PREMEDICATION
     Dosage: UNK
     Route: 065
  8. LACTITOL [Concomitant]
     Indication: PRODUCT USED FOR UNKNOWN INDICATION
     Dosage: UNK
  9. OMEPRAZOLE [Concomitant]
     Indication: PRODUCT USED FOR UNKNOWN INDICATION
     Dosage: UNK
  10. PROPANOLOL [Concomitant]
     Indication: PRODUCT USED FOR UNKNOWN INDICATION
     Dosage: UNK
  11. MAGALDRAT [Concomitant]
     Indication: PRODUCT USED FOR UNKNOWN INDICATION
     Dosage: UNK
  12. DEURSIL [Concomitant]
     Indication: PRODUCT USED FOR UNKNOWN INDICATION
     Dosage: 600 mg, per os

REACTIONS (5)
  - Hypersensitivity [Recovered/Resolved]
  - Neck pain [Recovered/Resolved]
  - Back pain [Recovered/Resolved]
  - Spinal fracture [Not Recovered/Not Resolved]
  - Anxiety [Recovered/Resolved]
